FAERS Safety Report 19183301 (Version 1)
Quarter: 2021Q2

REPORT INFORMATION
  Report Type: Spontaneous
  Country: US (occurrence: US)
  Receive Date: 20210427
  Receipt Date: 20210427
  Transmission Date: 20210717
  Serious: No
  Sender: FDA-Public Use
  Company Number: US-DRREDDYS-USA/USA/21/0134544

PATIENT
  Age: 81 Year
  Sex: Female
  Weight: 51.75 kg

DRUGS (3)
  1. TOBRAMYCIN INHALATION SOLUTION [Suspect]
     Active Substance: TOBRAMYCIN
  2. ALBUTEROL. [Concomitant]
     Active Substance: ALBUTEROL
     Indication: MICROSCOPIC POLYANGIITIS
     Route: 045
  3. TOBRAMYCIN INHALATION SOLUTION [Suspect]
     Active Substance: TOBRAMYCIN
     Indication: BRONCHIECTASIS
     Dosage: FORM STRENGTH: 300MG/5ML
     Route: 045
     Dates: start: 20210415

REACTIONS (2)
  - Pain in extremity [Unknown]
  - Product quality issue [Unknown]
